FAERS Safety Report 5746495-2 (Version None)
Quarter: 2008Q2

REPORT INFORMATION
  Report Type: 
  Country: None (occurrence: None)
  Receive Date: 20080522
  Receipt Date: 20080514
  Transmission Date: 20081010
  Serious: Yes (Disabling, Other)
  Sender: FDA-Public Use
  Company Number: PHHY2008IT08044

PATIENT
  Age: 70 Year
  Sex: Female

DRUGS (4)
  1. ZOMETA [Suspect]
     Indication: MULTIPLE MYELOMA
     Dosage: 4 MG, QMO
     Route: 042
     Dates: start: 20070101
  2. DEXAMETHASONE TAB [Concomitant]
  3. VELCADE [Concomitant]
     Route: 042
  4. IBUSTRIN [Concomitant]
     Route: 048

REACTIONS (5)
  - BONE DISORDER [None]
  - BONE PAIN [None]
  - OSTEONECROSIS [None]
  - PAIN IN JAW [None]
  - PURULENT DISCHARGE [None]
